FAERS Safety Report 6063871-1 (Version None)
Quarter: 2009Q1

REPORT INFORMATION
  Report Type: 
  Country: None (occurrence: None)
  Receive Date: 20090130
  Receipt Date: 20090116
  Transmission Date: 20090719
  Serious: No
  Sender: FDA-Public Use
  Company Number: C-09-0010

PATIENT
  Age: 80 Year
  Sex: Male

DRUGS (6)
  1. NYSTATIN ORAL SUSPENSION, [Suspect]
     Indication: ORAL CANDIDIASIS
     Dosage: 1 TSB 4 TIMES/DAY ORAL
     Route: 048
     Dates: start: 20081218
  2. NYSTATIN ORAL SUSPENSION, [Suspect]
     Indication: ORAL LICHEN PLANUS
     Dosage: 1 TSB 4 TIMES/DAY ORAL
     Route: 048
     Dates: start: 20081218
  3. HYDROCHLOROTHIAZIDE [Concomitant]
  4. PROPRANOLOL [Concomitant]
  5. LISINOPRIL [Concomitant]
  6. SYMVASTATIN [Concomitant]

REACTIONS (2)
  - BURNING SENSATION [None]
  - DYSGEUSIA [None]
